FAERS Safety Report 14154144 (Version 2)
Quarter: 2018Q2

REPORT INFORMATION
  Report Type: Spontaneous
  Country: US (occurrence: US)
  Receive Date: 20171102
  Receipt Date: 20180501
  Transmission Date: 20180711
  Serious: No
  Sender: FDA-Public Use
  Company Number: US-AMGEN-USASP2017129055

PATIENT
  Age: 86 Year
  Sex: Male

DRUGS (3)
  1. IMLYGIC [Suspect]
     Active Substance: TALIMOGENE LAHERPAREPVEC
     Indication: MALIGNANT MELANOMA
     Dosage: UNK (10 (X 6))
     Route: 026
     Dates: start: 20170802
  2. IMLYGIC [Suspect]
     Active Substance: TALIMOGENE LAHERPAREPVEC
     Dosage: 4 ML, 108 PFU/ML
     Route: 026
     Dates: end: 2017
  3. KEYTRUDA [Concomitant]
     Active Substance: PEMBROLIZUMAB
     Indication: MALIGNANT MELANOMA
     Dosage: UNK

REACTIONS (12)
  - Chromaturia [Unknown]
  - Head injury [Unknown]
  - Off label use [Unknown]
  - Fall [Unknown]
  - Pyrexia [Unknown]
  - Tremor [Recovered/Resolved]
  - Fatigue [Unknown]
  - Injection site pain [Recovered/Resolved]
  - Hyperhidrosis [Unknown]
  - Dizziness [Unknown]
  - Urinary incontinence [Unknown]
  - Chills [Recovered/Resolved]

NARRATIVE: CASE EVENT DATE: 201708
